FAERS Safety Report 12100555 (Version 1)
Quarter: 2016Q1

REPORT INFORMATION
  Report Type: Spontaneous
  Country: GB (occurrence: GB)
  Receive Date: 20160222
  Receipt Date: 20160222
  Transmission Date: 20160526
  Serious: Yes (Disabling)
  Sender: FDA-Public Use
  Company Number: GB-PFIZER INC-2016103716

PATIENT
  Age: 60 Year
  Sex: Female
  Weight: 48 kg

DRUGS (11)
  1. FLUTICASONE [Concomitant]
     Active Substance: FLUTICASONE\FLUTICASONE PROPIONATE
     Dosage: 2 DF, 2X/DAY (PUFFS)
     Dates: start: 20151207, end: 20160104
  2. DIPROBASE [Concomitant]
     Active Substance: CHLOROCRESOL
     Dosage: UNK (APPLY)
     Dates: start: 20160120
  3. FLUTIFORM [Concomitant]
     Active Substance: FLUTICASONE PROPIONATE\FORMOTEROL FUMARATE
     Dosage: 2 DF, 2X/DAY  (PUFFS.)
     Dates: start: 20150629
  4. NICOTINE. [Concomitant]
     Active Substance: NICOTINE
     Dosage: UNK, AS NEEDED
     Dates: start: 20160120, end: 20160203
  5. SALBUTAMOL [Concomitant]
     Active Substance: ALBUTEROL
     Dosage: 2 DF, UNK
     Route: 055
     Dates: start: 20150729
  6. COCODAMOL [Concomitant]
     Active Substance: ACETAMINOPHEN\CODEINE PHOSPHATE
     Dosage: TAKE ONE OR TWO UP TO FOUR TIMES A DAY
     Dates: start: 20151222, end: 20160121
  7. HYDROXOCOBALAMIN [Concomitant]
     Active Substance: HYDROXOCOBALAMIN
     Dosage: UNK, AS NEEDED
     Dates: start: 20160120, end: 20160121
  8. CHAMPIX [Suspect]
     Active Substance: VARENICLINE TARTRATE
     Dosage: 500 UG, UNK
     Dates: start: 20160211, end: 201602
  9. CLARITHROMYCIN. [Concomitant]
     Active Substance: CLARITHROMYCIN
     Dosage: 1 DF, UNK
     Dates: start: 20150629
  10. CO-AMOXICLAV [Concomitant]
     Active Substance: AMOXICILLIN\CLAVULANIC ACID
     Dosage: 1 DF, 3X/DAY
     Dates: start: 20151207, end: 20151214
  11. PREDNISOLONE. [Concomitant]
     Active Substance: PREDNISOLONE
     Dosage: 8 DF, 1X/DAY (EVERY MORNING)
     Dates: start: 20150629

REACTIONS (3)
  - Fear [Unknown]
  - Emotional distress [Unknown]
  - Depressed mood [Recovered/Resolved]

NARRATIVE: CASE EVENT DATE: 201602
